FAERS Safety Report 11266019 (Version 1)
Quarter: 2015Q2

REPORT INFORMATION
  Report Type: Spontaneous
  Country: US (occurrence: None)
  Receive Date: 20150625
  Receipt Date: 20150625
  Transmission Date: 20150821
  Serious: Yes (Hospitalization)
  Sender: FDA-Public Use
  Company Number: A-US2015-113414

PATIENT
  Age: 48 Year
  Sex: Female

DRUGS (1)
  1. OPSUMIT [Suspect]
     Active Substance: MACITENTAN
     Indication: PULMONARY ARTERIAL HYPERTENSION
     Route: 048
     Dates: start: 201409, end: 20150227

REACTIONS (3)
  - Drug ineffective [None]
  - Pulmonary arterial pressure increased [None]
  - Haemodynamic instability [None]

NARRATIVE: CASE EVENT DATE: 20150227
